FAERS Safety Report 7665936-7 (Version None)
Quarter: 2011Q3

REPORT INFORMATION
  Report Type: 
  Country: None (occurrence: None)
  Receive Date: 20110806
  Receipt Date: 20110623
  Transmission Date: 20111222
  Serious: No
  Sender: FDA-Public Use
  Company Number: US-ABBOTT-11P-163-0734482-00

PATIENT
  Sex: Male
  Weight: 81.72 kg

DRUGS (10)
  1. NIASPAN [Suspect]
     Indication: LOW DENSITY LIPOPROTEIN INCREASED
     Route: 048
     Dates: start: 20110617
  2. ASPIRIN [Concomitant]
     Indication: CARDIAC DISORDER
     Route: 048
  3. OXYGEN [Concomitant]
     Indication: DYSPNOEA
  4. TOPROL-XL [Concomitant]
     Indication: HYPERTENSION
     Route: 050
  5. OXYGEN [Concomitant]
     Indication: CARDIAC DISORDER
     Dosage: 2L/MIN EVERY EVENING AND AS NEEDED DURING THE DAY
     Route: 055
  6. NITROGLYCERIN [Concomitant]
     Indication: CHEST PAIN
     Dosage: ONE TABLET EVERY FIVE MINUTES, NOT TO EXCEED THREE DOSES
     Route: 060
  7. COQ10 [Concomitant]
     Indication: MEDICAL DIET
     Route: 048
  8. NITROGLYCERIN [Concomitant]
     Indication: ANGINA PECTORIS
     Dosage: APPLY ONE PATCH EVERY MORNING AND REMOVE EVERY EVENING
     Route: 062
  9. PLAVIX [Concomitant]
     Indication: CARDIAC DISORDER
     Route: 048
  10. VITAMIN D [Concomitant]
     Indication: MEDICAL DIET
     Route: 048

REACTIONS (3)
  - PARAESTHESIA [None]
  - FLUSHING [None]
  - BURNING SENSATION [None]
